FAERS Safety Report 9443560 (Version 1)
Quarter: 2013Q3

REPORT INFORMATION
  Report Type: Spontaneous
  Country: US (occurrence: US)
  Receive Date: 20130806
  Receipt Date: 20130806
  Transmission Date: 20140515
  Serious: No
  Sender: FDA-Public Use
  Company Number: US-PFIZER INC-2013225566

PATIENT
  Age: 63 Year
  Sex: Male

DRUGS (1)
  1. INLYTA [Suspect]
     Dosage: 5 MG, 2X/DAY
     Dates: start: 20130702

REACTIONS (1)
  - Dysphonia [Unknown]
